FAERS Safety Report 7709420-0 (Version None)
Quarter: 2011Q3

REPORT INFORMATION
  Report Type: 
  Country: None (occurrence: None)
  Receive Date: 20110819
  Receipt Date: 20110811
  Transmission Date: 20111222
  Serious: Yes (Hospitalization)
  Sender: FDA-Public Use
  Company Number: 2011SP037909

PATIENT
  Age: 20 Year
  Sex: Female

DRUGS (1)
  1. CHORIONIC GONADOTROPIN [Suspect]
     Indication: OVULATION INDUCTION

REACTIONS (12)
  - OVARIAN HYPERSTIMULATION SYNDROME [None]
  - OVARIAN ENLARGEMENT [None]
  - TACHYCARDIA [None]
  - ABDOMINAL RIGIDITY [None]
  - THROMBOSIS [None]
  - HYPOTENSION [None]
  - ABDOMINAL PAIN LOWER [None]
  - PLEURAL EFFUSION [None]
  - ABDOMINAL DISTENSION [None]
  - ASCITES [None]
  - HAEMOGLOBIN DECREASED [None]
  - OVARIAN RUPTURE [None]
